FAERS Safety Report 9112934 (Version 1)
Quarter: 2013Q1

REPORT INFORMATION
  Report Type: Spontaneous
  Country: US (occurrence: US)
  Receive Date: 20130211
  Receipt Date: 20130211
  Transmission Date: 20140127
  Serious: Yes (Hospitalization, Other)
  Sender: FDA-Public Use
  Company Number: US-ROCHE-1184232

PATIENT
  Age: 57 Year
  Sex: Male
  Weight: 104.87 kg

DRUGS (15)
  1. RITUXAN [Suspect]
     Indication: PROSTATE CANCER
     Route: 065
     Dates: start: 20120508, end: 20121023
  2. XGEVA [Suspect]
     Indication: PROSTATE CANCER
     Route: 065
     Dates: start: 20120406
  3. XGEVA [Suspect]
     Route: 065
     Dates: start: 20120511
  4. XGEVA [Suspect]
     Route: 065
     Dates: start: 20120810
  5. XGEVA [Suspect]
     Route: 065
     Dates: start: 20120921
  6. LUPRON [Concomitant]
     Route: 065
     Dates: start: 20120406
  7. CYCLOPHOSPHAMIDE [Concomitant]
     Route: 065
     Dates: start: 20110521
  8. VINCRISTINE [Concomitant]
     Route: 065
     Dates: start: 20110521
  9. DOXORUBICIN [Concomitant]
     Route: 065
     Dates: start: 20110521
  10. DEXAMETHASONE [Concomitant]
     Route: 065
     Dates: start: 20110521
  11. CASODEX [Concomitant]
     Route: 065
     Dates: start: 20120313
  12. BACTRIM [Concomitant]
     Route: 065
  13. ACYCLOVIR [Concomitant]
     Route: 065
  14. FLUCONAZOLE [Concomitant]
     Route: 065
  15. WARFARIN [Concomitant]
     Route: 065

REACTIONS (23)
  - Meningitis aseptic [Unknown]
  - Human antichimeric antibody test [Unknown]
  - Encephalitis [Unknown]
  - Serum sickness [Unknown]
  - Cognitive disorder [Unknown]
  - Dizziness [Recovering/Resolving]
  - Amnesia [Recovering/Resolving]
  - Pyrexia [Recovering/Resolving]
  - Blood lactic acid increased [Unknown]
  - Speech disorder [Recovering/Resolving]
  - Tremor [Unknown]
  - Chills [Unknown]
  - Hot flush [Unknown]
  - Arthralgia [Unknown]
  - Back pain [Unknown]
  - Influenza like illness [Unknown]
  - Rash pruritic [Unknown]
  - Contusion [Unknown]
  - Hypersomnia [Unknown]
  - Hair disorder [Unknown]
  - Asthenia [Unknown]
  - Diarrhoea [Unknown]
  - Blood phosphorus decreased [Unknown]
